FAERS Safety Report 19318490 (Version 1)
Quarter: 2021Q2

REPORT INFORMATION
  Report Type: Spontaneous
  Country: US (occurrence: US)
  Receive Date: 20210527
  Receipt Date: 20210527
  Transmission Date: 20210717
  Serious: No
  Sender: FDA-Public Use
  Company Number: US-BAYER-2021-146556

PATIENT
  Age: 36 Year
  Sex: Male

DRUGS (1)
  1. KYLEENA [Suspect]
     Active Substance: LEVONORGESTREL
     Route: 003

REACTIONS (2)
  - Dermatitis allergic [Recovered/Resolved]
  - Penile rash [Recovered/Resolved]

NARRATIVE: CASE EVENT DATE: 202105
